FAERS Safety Report 14013738 (Version 2)
Quarter: 2017Q4

REPORT INFORMATION
  Report Type: Spontaneous
  Country: US (occurrence: US)
  Receive Date: 20170926
  Receipt Date: 20171010
  Transmission Date: 20180321
  Serious: Yes (Hospitalization)
  Sender: FDA-Public Use
  Company Number: US-ACTELION-A-US2017-159840

PATIENT
  Age: 66 Year
  Sex: Female

DRUGS (2)
  1. OPSUMIT [Suspect]
     Active Substance: MACITENTAN
     Indication: PULMONARY ARTERIAL HYPERTENSION
     Dosage: 10 MG, QD
     Route: 048
     Dates: start: 20150224
  2. ADCIRCA [Concomitant]
     Active Substance: TADALAFIL

REACTIONS (2)
  - Diarrhoea [Recovering/Resolving]
  - Clostridium difficile colitis [Recovering/Resolving]
